FAERS Safety Report 18381149 (Version 1)
Quarter: 2020Q4

REPORT INFORMATION
  Report Type: Spontaneous
  Country: US (occurrence: US)
  Receive Date: 20201013
  Receipt Date: 20201013
  Transmission Date: 20210114
  Serious: No
  Sender: FDA-Public Use
  Company Number: None

PATIENT
  Age: 35 Year
  Sex: Female

DRUGS (1)
  1. INFED [Suspect]
     Active Substance: IRON DEXTRAN
     Indication: IRON DEFICIENCY ANAEMIA
     Dosage: ?          OTHER FREQUENCY:1 TIME DOSE;?
     Route: 042
     Dates: start: 20200925

REACTIONS (2)
  - Feeling hot [None]
  - Dizziness [None]

NARRATIVE: CASE EVENT DATE: 20200925
